FAERS Safety Report 6634049-5 (Version None)
Quarter: 2010Q1

REPORT INFORMATION
  Report Type: 
  Country: None (occurrence: None)
  Receive Date: 20100315
  Receipt Date: 20100311
  Transmission Date: 20100710
  Serious: Yes (Other)
  Sender: FDA-Public Use
  Company Number: PHEH2010US01855

PATIENT
  Sex: Female
  Weight: 48.345 kg

DRUGS (1)
  1. SANDOSTATIN [Suspect]
     Indication: CARCINOID SYNDROME
     Dosage: 0.05 MG/ML, UNK
     Route: 058
     Dates: start: 20100126, end: 20100129

REACTIONS (2)
  - ERYTHEMA [None]
  - EYE SWELLING [None]
